FAERS Safety Report 10517925 (Version 3)
Quarter: 2014Q4

REPORT INFORMATION
  Report Type: Spontaneous
  Country: US (occurrence: US)
  Receive Date: 20141015
  Receipt Date: 20141103
  Transmission Date: 20150528
  Serious: Yes (Death, Life-Threatening, Hospitalization, Other)
  Sender: FDA-Public Use
  Company Number: US-BRISTOL-MYERS SQUIBB COMPANY-21376751

PATIENT
  Age: 72 Year
  Sex: Female

DRUGS (7)
  1. OXALIPLATIN. [Suspect]
     Active Substance: OXALIPLATIN
     Indication: COLON CANCER
     Route: 042
  2. METOPROLOL [Concomitant]
     Active Substance: METOPROLOL
  3. ERBITUX [Suspect]
     Active Substance: CETUXIMAB
     Indication: COLON CANCER RECURRENT
     Dosage: 1DF: 455
     Route: 042
     Dates: start: 20140303, end: 20140825
  4. FOLINIC ACID [Suspect]
     Active Substance: LEUCOVORIN
  5. DECADRON [Concomitant]
     Active Substance: DEXAMETHASONE
  6. FLUOROURACIL. [Suspect]
     Active Substance: FLUOROURACIL
     Indication: COLON CANCER
     Dosage: 728G, 438G 2WEEKS
     Route: 042
     Dates: start: 20140303, end: 20140825
  7. HYDROCORTISONE. [Concomitant]
     Active Substance: HYDROCORTISONE

REACTIONS (2)
  - Acute respiratory failure [Fatal]
  - Interstitial lung disease [Fatal]

NARRATIVE: CASE EVENT DATE: 20140716
